FAERS Safety Report 8535195 (Version 3)
Quarter: 2013Q1

REPORT INFORMATION
  Report Type: Spontaneous
  Country: US (occurrence: US)
  Receive Date: 20120427
  Receipt Date: 20130313
  Transmission Date: 20140127
  Serious: Yes (Hospitalization, Other)
  Sender: FDA-Public Use
  Company Number: US-RB-039622-12

PATIENT
  Age: 26 Year
  Sex: Female

DRUGS (8)
  1. GENERIC BUPRENORPHINE [Suspect]
     Indication: DRUG DEPENDENCE
     Route: 060
     Dates: start: 201001, end: 20111101
  2. GENERIC BUPRENORPHINE [Suspect]
     Route: 060
     Dates: start: 201111, end: 201111
  3. GENERIC BUPRENORPHINE [Suspect]
     Route: 060
     Dates: start: 201111
  4. PITOCIN [Suspect]
     Indication: INDUCED LABOUR
     Dosage: UNKNOWN DOSAGE DETAILS
     Route: 065
     Dates: start: 20111102, end: 20111102
  5. PRENATAL VITAMINS [Concomitant]
     Indication: PREGNANCY
     Dosage: UNKNOWN DOSAGE DETAILS
     Route: 065
     Dates: start: 201103, end: 20111224
  6. FISH OIL [Concomitant]
     Indication: MEDICAL DIET
     Dosage: UNKNOWN DOSAGE DETAILS
     Route: 065
     Dates: start: 201103, end: 20111224
  7. BIOTIN [Concomitant]
     Indication: MEDICAL DIET
     Route: 065
     Dates: start: 201103
  8. ZOLOFT [Concomitant]
     Indication: POSTPARTUM DEPRESSION
     Route: 065
     Dates: start: 201111

REACTIONS (7)
  - Exposure during pregnancy [Recovered/Resolved]
  - Foetal growth restriction [Recovered/Resolved]
  - Foetal heart rate decreased [Recovered/Resolved]
  - Gestational hypertension [Recovered/Resolved]
  - Drug withdrawal syndrome [Recovered/Resolved]
  - Postpartum depression [Not Recovered/Not Resolved]
  - Procedural pain [Recovered/Resolved]
